FAERS Safety Report 9302153 (Version 2)
Quarter: 2013Q4

REPORT INFORMATION
  Report Type: Spontaneous
  Country: US (occurrence: US)
  Receive Date: 20130522
  Receipt Date: 20131112
  Transmission Date: 20140711
  Serious: Yes (Hospitalization)
  Sender: FDA-Public Use
  Company Number: US-B.I. PHARMACEUTICALS,INC./RIDGEFIELD-2013-BI-14235BP

PATIENT
  Age: 59 Year
  Sex: Female
  Weight: 68.04 kg

DRUGS (8)
  1. PRADAXA [Suspect]
     Indication: ANTICOAGULANT THERAPY
     Dates: start: 20120216, end: 201207
  2. PRADAXA [Suspect]
     Indication: ATRIAL FIBRILLATION
     Dosage: 300 MG
     Dates: start: 20120710, end: 20120921
  3. COREG [Concomitant]
     Indication: HYPERTENSION
     Dates: start: 2012
  4. METFORMIN [Concomitant]
     Indication: DIABETES MELLITUS
     Dates: start: 2003
  5. STATINS [Concomitant]
     Indication: DYSLIPIDAEMIA
  6. ASPIRIN [Concomitant]
  7. LASIX [Concomitant]
     Dates: start: 2012
  8. FERROUS SULFATE [Concomitant]
     Dates: start: 2012

REACTIONS (8)
  - Gastrointestinal haemorrhage [Unknown]
  - Gastrointestinal haemorrhage [Unknown]
  - Anaemia [Unknown]
  - Urinary tract infection [Unknown]
  - Systemic inflammatory response syndrome [Unknown]
  - Hyperkalaemia [Unknown]
  - Acute prerenal failure [Unknown]
  - Anaemia [Unknown]
